FAERS Safety Report 9937243 (Version 2)
Quarter: 2014Q1

REPORT INFORMATION
  Report Type: Spontaneous
  Country: US (occurrence: US)
  Receive Date: 20140302
  Receipt Date: 20140302
  Transmission Date: 20141002
  Serious: Yes (Other)
  Sender: FDA-Public Use
  Company Number: US-GE HEALTHCARE MEDICAL DIAGNOSTICS-OSCN-PR-0811S-0612

PATIENT
  Age: 68 Year
  Sex: Female

DRUGS (3)
  1. OMNISCAN [Suspect]
     Indication: BREAST CANCER
     Route: 042
     Dates: start: 20050407, end: 20050407
  2. OMNISCAN [Suspect]
     Route: 042
     Dates: start: 20050502, end: 20050502
  3. OMNISCAN [Suspect]
     Route: 042
     Dates: start: 20060117, end: 20060117

REACTIONS (1)
  - Nephrogenic systemic fibrosis [Not Recovered/Not Resolved]
